FAERS Safety Report 23403027 (Version 3)
Quarter: 2024Q2

REPORT INFORMATION
  Report Type: Report from Study
  Country: US (occurrence: US)
  Receive Date: 20240115
  Receipt Date: 20240502
  Transmission Date: 20240715
  Serious: Yes (Other)
  Sender: FDA-Public Use
  Company Number: US-ABBVIE-5584971

PATIENT
  Age: 66 Year
  Sex: Male

DRUGS (1)
  1. VENCLEXTA [Suspect]
     Active Substance: VENETOCLAX
     Indication: Acute myeloid leukaemia
     Route: 048
     Dates: start: 202311

REACTIONS (9)
  - Chemotherapy [Unknown]
  - Unevaluable event [Unknown]
  - Vomiting [Unknown]
  - Dry throat [Unknown]
  - Unevaluable event [Unknown]
  - Bedridden [Recovering/Resolving]
  - Cough [Unknown]
  - Renal disorder [Unknown]
  - Illness [Unknown]

NARRATIVE: CASE EVENT DATE: 20240109
